FAERS Safety Report 9789609 (Version 3)
Quarter: 2016Q1

REPORT INFORMATION
  Report Type: Spontaneous
  Country: US (occurrence: US)
  Receive Date: 20131231
  Receipt Date: 20160218
  Transmission Date: 20160526
  Serious: Yes (Other)
  Sender: FDA-Public Use
  Company Number: US-JNJFOC-20131216838

PATIENT
  Age: 18 Month
  Sex: Male

DRUGS (2)
  1. CHILDRENS MOTRIN [Suspect]
     Active Substance: IBUPROFEN
     Indication: PAIN
     Route: 065
  2. CHILDRENS ADVIL [Suspect]
     Active Substance: IBUPROFEN
     Indication: PAIN
     Dosage: ABOUT 2ML (1/4 OF TEASPOON) EVERY 6-8 HOURS
     Route: 048

REACTIONS (8)
  - Cough [Unknown]
  - Urticaria [Unknown]
  - Vomiting [Unknown]
  - Rhinorrhoea [Unknown]
  - Shock [Unknown]
  - Rash [Unknown]
  - Erythema [Unknown]
  - Diarrhoea [Unknown]
